FAERS Safety Report 20094141 (Version 2)
Quarter: 2021Q4

REPORT INFORMATION
  Report Type: Report from Study
  Country: HK (occurrence: None)
  Receive Date: 20211122
  Receipt Date: 20211209
  Transmission Date: 20220303
  Serious: Yes (Hospitalization)
  Sender: FDA-Public Use
  Company Number: HK-ROCHE-2957771

PATIENT
  Age: 76 Year
  Sex: Male
  Weight: 70.2 kg

DRUGS (12)
  1. ALECTINIB [Suspect]
     Active Substance: ALECTINIB
     Indication: Non-small cell lung cancer
     Dosage: DOSE LAST STUDY DRUG ADMIN PRIOR AE IS 600 MGDOSE LAST STUDY DRUG ADMIN PRIOR SAE IS 600 MG
     Route: 048
     Dates: start: 20180427
  2. ALECTINIB [Suspect]
     Active Substance: ALECTINIB
     Indication: Non-small cell lung cancer metastatic
  3. NIZORAL [Concomitant]
     Active Substance: KETOCONAZOLE
     Indication: Psoriasis
     Dosage: YES
     Route: 061
     Dates: start: 20180608
  4. CLOTRIMAZOLE [Concomitant]
     Active Substance: CLOTRIMAZOLE
     Indication: Nail psoriasis
     Dosage: YES
     Route: 061
     Dates: start: 20180711
  5. EMULSIFYING OINTMENT [Concomitant]
     Indication: Psoriasis
     Dosage: YES
     Dates: start: 20181003
  6. AQUEOUS CREAM [Concomitant]
     Indication: Psoriasis
     Dosage: YES
     Dates: start: 20181003
  7. DIPHENHYDRAMINE COMPOUND LINCTUS [Concomitant]
     Indication: Cough
     Dosage: YES
     Dates: start: 20190815
  8. FAMOTIDINE [Concomitant]
     Active Substance: FAMOTIDINE
     Dosage: GIVEN FOR PROPHYLAXIS IS YES ;ONGOING: YES
     Dates: start: 20200227
  9. INNOHEP [Concomitant]
     Active Substance: TINZAPARIN SODIUM
     Indication: Pulmonary embolism
     Dosage: DRUG DOSE FIRST ADMINISTERED IS 9000 OTHER ;ONGOING: YES
     Route: 055
     Dates: start: 20200507
  10. MOMETASONE FUROATE [Concomitant]
     Active Substance: MOMETASONE FUROATE
     Indication: Psoriasis
     Dosage: YES
     Dates: start: 20180608
  11. PREDNISOLONE [Concomitant]
     Active Substance: PREDNISOLONE
     Dosage: NO
     Dates: start: 20210909, end: 20211104
  12. PREDNISOLONE [Concomitant]
     Active Substance: PREDNISOLONE
     Dosage: YES
     Dates: start: 20211105

REACTIONS (1)
  - Toothache [Recovered/Resolved]

NARRATIVE: CASE EVENT DATE: 20211105
